FAERS Safety Report 8480944-4 (Version None)
Quarter: 2012Q3

REPORT INFORMATION
  Report Type: 
  Country: None (occurrence: None)
  Receive Date: 20120702
  Receipt Date: 20120621
  Transmission Date: 20120928
  Serious: Yes (Other)
  Sender: FDA-Public Use
  Company Number: CA-JNJFOC-20120611256

PATIENT
  Sex: Female
  Weight: 55 kg

DRUGS (2)
  1. IMURAN [Concomitant]
     Dosage: TAKEN FOR 1 MONTH, DISCONTINUED 2 MONTHS AGO
     Route: 065
  2. REMICADE [Suspect]
     Indication: CROHN'S DISEASE
     Route: 042
     Dates: start: 20120510

REACTIONS (4)
  - VOMITING [None]
  - DIZZINESS [None]
  - DYSPNOEA [None]
  - BLOOD POTASSIUM DECREASED [None]
